FAERS Safety Report 20984527 (Version 1)
Quarter: 2022Q2

REPORT INFORMATION
  Report Type: Spontaneous
  Country: US (occurrence: None)
  Receive Date: 20220621
  Receipt Date: 20220621
  Transmission Date: 20220720
  Serious: No
  Sender: FDA-Public Use
  Company Number: US-ROCHE-2839985

PATIENT
  Age: 56 Year
  Sex: Female

DRUGS (1)
  1. XELODA [Suspect]
     Active Substance: CAPECITABINE
     Indication: Product used for unknown indication
     Dosage: 1500MG AM, 2000MG PM
     Route: 048
     Dates: start: 202105

REACTIONS (3)
  - Temperature intolerance [Unknown]
  - Diarrhoea [Unknown]
  - Gastric infection [Unknown]

NARRATIVE: CASE EVENT DATE: 20210512
